FAERS Safety Report 6572898-2 (Version None)
Quarter: 2010Q1

REPORT INFORMATION
  Report Type: 
  Country: None (occurrence: None)
  Receive Date: 20100207
  Receipt Date: 20100201
  Transmission Date: 20100710
  Serious: Yes (Hospitalization)
  Sender: FDA-Public Use
  Company Number: FR-MERCK-1002FRA00012

PATIENT
  Age: 75 Year
  Sex: Male

DRUGS (4)
  1. JANUVIA [Suspect]
     Route: 048
  2. ATORVASTATIN CALCIUM [Concomitant]
     Route: 048
  3. RILMENIDINE PHOSPHATE [Concomitant]
     Route: 048
  4. METFORMIN PAMOATE [Concomitant]
     Route: 048
     Dates: end: 20090101

REACTIONS (4)
  - HUNGER [None]
  - HYPERHIDROSIS [None]
  - MALAISE [None]
  - TREMOR [None]
